FAERS Safety Report 16528202 (Version 1)
Quarter: 2019Q3

REPORT INFORMATION
  Report Type: Spontaneous
  Country: CN (occurrence: CN)
  Receive Date: 20190704
  Receipt Date: 20190704
  Transmission Date: 20191004
  Serious: Yes (Life-Threatening)
  Sender: FDA-Public Use
  Company Number: CN-ASTRAZENECA-2019SE96121

PATIENT
  Age: 27103 Day
  Sex: Male
  Weight: 50 kg

DRUGS (3)
  1. PULMICORT RESPULES [Suspect]
     Active Substance: BUDESONIDE
     Indication: ANTIINFLAMMATORY THERAPY
     Route: 055
     Dates: start: 20190624
  2. PULMICORT RESPULES [Suspect]
     Active Substance: BUDESONIDE
     Indication: ASTHMA
     Route: 055
     Dates: start: 20190624
  3. ACETYLCYSTEINE. [Suspect]
     Active Substance: ACETYLCYSTEINE
     Indication: PRODUCTIVE COUGH
     Route: 055
     Dates: start: 20190624

REACTIONS (4)
  - Dyspnoea [Recovered/Resolved]
  - Blood pressure increased [Recovered/Resolved]
  - Cyanosis [Recovered/Resolved]
  - Heart rate increased [Recovered/Resolved]

NARRATIVE: CASE EVENT DATE: 20190624
